FAERS Safety Report 5682375-9 (Version None)
Quarter: 2008Q1

REPORT INFORMATION
  Report Type: 
  Country: None (occurrence: None)
  Receive Date: 20080327
  Receipt Date: 20071107
  Transmission Date: 20080703
  Serious: No
  Sender: FDA-Public Use
  Company Number: US-BAUSCH-2007BL004068

PATIENT
  Age: 81 Year
  Sex: Female

DRUGS (1)
  1. IPRATROPIUM BROMIDE NASAL SOLUTION 0.03% [Suspect]
     Indication: RHINITIS
     Route: 045
     Dates: start: 20071012, end: 20071001

REACTIONS (3)
  - BALANCE DISORDER [None]
  - DIZZINESS [None]
  - TREMOR [None]
